FAERS Safety Report 25335014 (Version 1)
Quarter: 2025Q2

REPORT INFORMATION
  Report Type: Spontaneous
  Country: US (occurrence: US)
  Receive Date: 20250520
  Receipt Date: 20250520
  Transmission Date: 20250717
  Serious: No
  Sender: DR REDDYS
  Company Number: US-DRL-USA-USA/2025/05/007050

PATIENT
  Age: 58 Year
  Sex: Female

DRUGS (9)
  1. PREGABALIN [Suspect]
     Active Substance: PREGABALIN
     Indication: Neuralgia
  2. GABAPENTIN [Concomitant]
     Active Substance: GABAPENTIN
     Indication: Neuralgia
  3. METHADONE [Concomitant]
     Active Substance: METHADONE HYDROCHLORIDE
     Indication: Neuralgia
  4. TRAMADOL [Concomitant]
     Active Substance: TRAMADOL
     Indication: Neuralgia
  5. TAPENTADOL [Concomitant]
     Active Substance: TAPENTADOL
     Indication: Neuralgia
  6. DULOXETINE [Concomitant]
     Active Substance: DULOXETINE
     Indication: Neuralgia
  7. VITAMIN B [Concomitant]
     Active Substance: VITAMIN B
     Indication: Neuralgia
  8. MENTHOL [Concomitant]
     Active Substance: MENTHOL
     Indication: Neuralgia
  9. THIOCTIC ACID [Concomitant]
     Active Substance: THIOCTIC ACID
     Indication: Neuralgia

REACTIONS (1)
  - Drug ineffective [Unknown]
